FAERS Safety Report 15940981 (Version 2)
Quarter: 2019Q3

REPORT INFORMATION
  Report Type: Spontaneous
  Country: DK (occurrence: DK)
  Receive Date: 20190208
  Receipt Date: 20190729
  Transmission Date: 20191004
  Serious: Yes (Death, Hospitalization, Disabling, Other)
  Sender: FDA-Public Use
  Company Number: DK-GE HEALTHCARE-OSCN-NO-0604S-0094

PATIENT

DRUGS (5)
  1. OMNISCAN [Suspect]
     Active Substance: GADODIAMIDE
     Indication: PRODUCT USED FOR UNKNOWN INDICATION
  2. OMNISCAN [Suspect]
     Active Substance: GADODIAMIDE
     Indication: TRANSPLANT EVALUATION
     Dosage: 50 ML, SINGLE
     Route: 042
     Dates: start: 20020114, end: 20020114
  3. OMNISCAN [Suspect]
     Active Substance: GADODIAMIDE
     Indication: DIAGNOSTIC PROCEDURE
     Dosage: 50 ML, SINGLE
     Route: 042
     Dates: start: 20040629, end: 20040629
  4. RENAGEL [Concomitant]
     Active Substance: SEVELAMER HYDROCHLORIDE
  5. CALCIUM ACETATE. [Concomitant]
     Active Substance: CALCIUM ACETATE

REACTIONS (17)
  - Skin atrophy [Not Recovered/Not Resolved]
  - Alopecia [Not Recovered/Not Resolved]
  - Joint range of motion decreased [Not Recovered/Not Resolved]
  - Erythema [Not Recovered/Not Resolved]
  - Pruritus [Not Recovered/Not Resolved]
  - Skin hypertrophy [Not Recovered/Not Resolved]
  - Musculoskeletal stiffness [Not Recovered/Not Resolved]
  - Pain [Not Recovered/Not Resolved]
  - Pain in extremity [Not Recovered/Not Resolved]
  - Nephrogenic systemic fibrosis [Not Recovered/Not Resolved]
  - Lung infiltration [Unknown]
  - Skin hyperpigmentation [Not Recovered/Not Resolved]
  - Joint contracture [Not Recovered/Not Resolved]
  - Hyperkeratosis [Not Recovered/Not Resolved]
  - Dyspnoea [Unknown]
  - Peau d^orange [Not Recovered/Not Resolved]
  - Abdominal pain [Recovered/Resolved]

NARRATIVE: CASE EVENT DATE: 20040630
